FAERS Safety Report 8831120 (Version 1)
Quarter: 2012Q4

REPORT INFORMATION
  Report Type: Report from Study
  Country: RU (occurrence: RU)
  Receive Date: 20121008
  Receipt Date: 20121008
  Transmission Date: 20130627
  Serious: Yes (Hospitalization)
  Sender: FDA-Public Use
  Company Number: PHHO2012RU014341

PATIENT
  Age: 66 Year
  Sex: Female
  Weight: 85.1 kg

DRUGS (21)
  1. BLINDED ENALAPRIL [Suspect]
     Indication: CARDIAC FAILURE CHRONIC
     Dosage: Double blinded
     Route: 048
     Dates: start: 20110516, end: 20120911
  2. BLINDED LCZ696 [Suspect]
     Indication: CARDIAC FAILURE CHRONIC
     Dosage: Double blinded
     Route: 048
     Dates: start: 20110516, end: 20120911
  3. BLINDED NO TREATMENT RECEIVED [Suspect]
     Indication: CARDIAC FAILURE CHRONIC
     Dosage: Double blinded
     Route: 048
     Dates: start: 20110516, end: 20120911
  4. BLINDED ENALAPRIL [Suspect]
     Dosage: Double blinded
     Route: 048
     Dates: start: 20120929
  5. BLINDED LCZ696 [Suspect]
     Dosage: Double blinded
     Route: 048
     Dates: start: 20120929
  6. BLINDED NO TREATMENT RECEIVED [Suspect]
     Dosage: Double blinded
     Route: 048
     Dates: start: 20120929
  7. LOSARTAN [Suspect]
  8. DIGOXIN [Suspect]
  9. ENOXAPARIN [Suspect]
  10. PROPRANOLOL [Suspect]
  11. PERINDOPRIL [Suspect]
  12. DIAZEPAM [Suspect]
  13. INDAPAMIDE [Suspect]
  14. ISOSORBIDE MONONITRATE [Suspect]
  15. PHENAZEPAM [Suspect]
  16. BISOPROLOL [Concomitant]
     Indication: CARDIAC FAILURE CHRONIC
     Dosage: 5 mg, QD
     Route: 048
     Dates: start: 201011, end: 20120911
  17. ATORVASTATIN [Concomitant]
     Indication: CORONARY ARTERY DISEASE
     Dosage: 20 mg, QD
     Route: 048
     Dates: start: 201011
  18. WARFARIN [Concomitant]
     Indication: ATRIAL FIBRILLATION
     Dosage: 5 mg, QD
     Route: 048
     Dates: start: 201011
  19. HYPOTHIAZID [Concomitant]
     Indication: CARDIAC FAILURE CHRONIC
     Dosage: 12.5 mg, QD
     Route: 048
     Dates: start: 201011, end: 20120911
  20. NITROGLYCERIN [Concomitant]
     Indication: CORONARY ARTERY DISEASE
     Dosage: PRN
     Route: 060
     Dates: start: 201011
  21. AMIODARONE [Concomitant]
     Indication: ATRIAL FIBRILLATION
     Dosage: 200 mg, QD
     Route: 048
     Dates: start: 201011

REACTIONS (1)
  - Coronary artery disease [Recovered/Resolved]
